FAERS Safety Report 9086344 (Version 1)
Quarter: 2013Q1

REPORT INFORMATION
  Report Type: Report from Study
  Country: US (occurrence: US)
  Receive Date: 20130130
  Receipt Date: 20130130
  Transmission Date: 20140127
  Serious: No
  Sender: FDA-Public Use
  Company Number: US-ABBOTT-12P-163-0979762-00

PATIENT
  Age: 41 Year
  Sex: Female
  Weight: 61.29 kg

DRUGS (6)
  1. HUMIRA [Suspect]
     Indication: POLYARTHRITIS
     Dosage: ONCE
     Dates: start: 20120706, end: 20120706
  2. HUMIRA [Suspect]
     Dosage: ONCE
     Dates: start: 20120713, end: 20120713
  3. HUMIRA [Suspect]
     Dosage: ONCE
     Dates: start: 20120803, end: 20120803
  4. HUMIRA [Suspect]
     Dosage: ONCE
     Dates: start: 20120810, end: 20120810
  5. HUMIRA [Suspect]
     Dates: start: 20120824
  6. MOTRIN [Concomitant]
     Indication: PRODUCT USED FOR UNKNOWN INDICATION

REACTIONS (4)
  - Off label use [Not Recovered/Not Resolved]
  - Contusion [Recovered/Resolved]
  - Pyrexia [Recovered/Resolved]
  - Lymphadenopathy [Recovered/Resolved]
